FAERS Safety Report 19217398 (Version 1)
Quarter: 2021Q2

REPORT INFORMATION
  Report Type: Spontaneous
  Country: US (occurrence: US)
  Receive Date: 20210505
  Receipt Date: 20210505
  Transmission Date: 20210717
  Serious: No
  Sender: FDA-Public Use
  Company Number: US-HIKMA PHARMACEUTICALS USA INC.-US-H14001-21-00439

PATIENT
  Sex: Female

DRUGS (2)
  1. BOSENTAN. [Suspect]
     Active Substance: BOSENTAN
     Indication: PRODUCT USED FOR UNKNOWN INDICATION
     Dosage: UNKNOWM
     Route: 065
  2. BOSENTAN. [Suspect]
     Active Substance: BOSENTAN
     Dosage: UNKNOWN
     Route: 065

REACTIONS (2)
  - Drug hypersensitivity [Unknown]
  - COVID-19 [Unknown]
